FAERS Safety Report 4435698-5 (Version None)
Quarter: 2004Q3

REPORT INFORMATION
  Report Type: 
  Country: None (occurrence: None)
  Receive Date: 20040726
  Receipt Date: 20040504
  Transmission Date: 20050211
  Serious: No
  Sender: FDA-Public Use
  Company Number: USA040465688

PATIENT
  Age: 60 Year
  Sex: Female

DRUGS (3)
  1. FORTEO [Suspect]
     Dates: start: 20030601, end: 20040101
  2. PREDNISONE [Concomitant]
  3. PEPCID [Concomitant]

REACTIONS (10)
  - BLOOD PRESSURE INCREASED [None]
  - DRY SKIN [None]
  - HYPOTENSION [None]
  - ILL-DEFINED DISORDER [None]
  - NERVE COMPRESSION [None]
  - PAIN EXACERBATED [None]
  - PRURITUS [None]
  - RHEUMATOID ARTHRITIS [None]
  - SWELLING [None]
  - THYROID DISORDER [None]
